FAERS Safety Report 19997504 (Version 2)
Quarter: 2021Q4

REPORT INFORMATION
  Report Type: Report from Study
  Country: KR (occurrence: KR)
  Receive Date: 20211026
  Receipt Date: 20211103
  Transmission Date: 20220303
  Serious: Yes (Death, Other)
  Sender: FDA-Public Use
  Company Number: KR-002147023-NVSC2021KR236052

PATIENT

DRUGS (14)
  1. RUXOLITINIB [Suspect]
     Active Substance: RUXOLITINIB
     Indication: Myelofibrosis
     Dosage: 20 MG, BID
     Route: 048
     Dates: start: 20210702, end: 20210801
  2. RUXOLITINIB [Suspect]
     Active Substance: RUXOLITINIB
     Dosage: 5 MG, BID
     Route: 048
     Dates: start: 20210802
  3. CARVEDILOL [Concomitant]
     Active Substance: CARVEDILOL
     Indication: Hypertension
     Dosage: 50 MG, QD
     Route: 048
     Dates: start: 20210702
  4. DIGOXIN [Concomitant]
     Active Substance: DIGOXIN
     Indication: Atrial flutter
     Dosage: 0.125 MG, QD
     Route: 048
     Dates: start: 20210627
  5. CORDARONE [Concomitant]
     Active Substance: AMIODARONE HYDROCHLORIDE
     Indication: Atrial flutter
     Dosage: 400 MG, QD
     Route: 048
     Dates: start: 20210630
  6. LASIX [Concomitant]
     Active Substance: FUROSEMIDE
     Indication: Prophylaxis
     Dosage: 40 MG, QD
     Route: 048
     Dates: start: 20210624
  7. LIPITOR [Concomitant]
     Active Substance: ATORVASTATIN CALCIUM
     Indication: Hyperlipidaemia
     Dosage: 10 MG, QD
     Route: 048
     Dates: start: 20210622
  8. MOSAPRIDE CITRATE [Concomitant]
     Active Substance: MOSAPRIDE CITRATE
     Indication: Prophylaxis
     Dosage: 15 MG, QD
     Route: 048
     Dates: start: 20210624
  9. MAGNESIUM OXIDE [Concomitant]
     Active Substance: MAGNESIUM OXIDE
     Indication: Prophylaxis
     Dosage: 500 MG, QD
     Route: 048
     Dates: start: 20210624
  10. ELIQUIS [Concomitant]
     Active Substance: APIXABAN
     Indication: Prophylaxis
     Dosage: 5 MG, QD
     Route: 048
     Dates: start: 20210702
  11. LACTULOSE [Concomitant]
     Active Substance: LACTULOSE
     Indication: Prophylaxis
     Dosage: 30 ML, QD
     Route: 048
     Dates: start: 20210702, end: 20210702
  12. BANAN [Concomitant]
     Active Substance: CEFPODOXIME PROXETIL
     Indication: Prophylaxis
     Dosage: 400 MG, QD
     Route: 048
     Dates: start: 20210701
  13. COUGH SYRUP [Concomitant]
     Active Substance: DEXTROMETHORPHAN HYDROBROMIDE\GUAIFENESIN
     Indication: Prophylaxis
     Dosage: 60 ML, QD
     Route: 048
     Dates: start: 20210630, end: 20210702
  14. FEBUXOSTAT [Concomitant]
     Active Substance: FEBUXOSTAT
     Indication: Prophylaxis
     Dosage: 40 MG, QD
     Route: 065
     Dates: start: 20210624

REACTIONS (3)
  - Pancytopenia [Fatal]
  - Myelofibrosis [Fatal]
  - Malignant neoplasm progression [Fatal]

NARRATIVE: CASE EVENT DATE: 20210802
